FAERS Safety Report 14199435 (Version 4)
Quarter: 2018Q1

REPORT INFORMATION
  Report Type: Spontaneous
  Country: US (occurrence: US)
  Receive Date: 20171117
  Receipt Date: 20180110
  Transmission Date: 20180508
  Serious: No
  Sender: FDA-Public Use
  Company Number: US-PFIZER INC-2017492803

PATIENT
  Age: 96 Year
  Sex: Female
  Weight: 68 kg

DRUGS (8)
  1. MELATONIN [Concomitant]
     Active Substance: MELATONIN
     Indication: SLEEP DISORDER
     Dosage: 3 MG, UNK
  2. TIKOSYN [Suspect]
     Active Substance: DOFETILIDE
     Dosage: 250MCG TABLET BY MOUTH (TAKE 1 EVERY MORNING AND ONE EVERY OTHER NIGHT)
     Route: 048
  3. XANAX [Concomitant]
     Active Substance: ALPRAZOLAM
     Indication: SLEEP DISORDER
     Dosage: UNK
  4. TIKOSYN [Suspect]
     Active Substance: DOFETILIDE
     Indication: ATRIAL FIBRILLATION
     Dosage: 250MCG TABLET BY MOUTH (STARTED WITH 1 IN AM AND 1 IN PM)
     Route: 048
     Dates: start: 2006
  5. ACETAMINOPHEN. [Concomitant]
     Active Substance: ACETAMINOPHEN
     Indication: PAIN
     Dosage: 250 MG, UNK
  6. TIKOSYN [Suspect]
     Active Substance: DOFETILIDE
     Dosage: 250 MG, 2X/DAY
     Route: 048
  7. ATENOLOL. [Concomitant]
     Active Substance: ATENOLOL
     Indication: HYPERTENSION
     Dosage: 12.5 MG, UNK (1/2 TABLET AT NIGHT)
     Dates: start: 2006
  8. MOTRIN [Concomitant]
     Active Substance: IBUPROFEN
     Dosage: 125 MG, UNK (1/2 TABLET)
     Dates: start: 20171020

REACTIONS (7)
  - Rash [Unknown]
  - Amnesia [Unknown]
  - Thinking abnormal [Recovering/Resolving]
  - Aphasia [Unknown]
  - Condition aggravated [Not Recovered/Not Resolved]
  - Inappropriate schedule of drug administration [Unknown]
  - Pruritus [Not Recovered/Not Resolved]

NARRATIVE: CASE EVENT DATE: 2017
